FAERS Safety Report 9190394 (Version 7)
Quarter: 2014Q4

REPORT INFORMATION
  Report Type: Spontaneous
  Country: US (occurrence: US)
  Receive Date: 20130326
  Receipt Date: 20141003
  Transmission Date: 20150529
  Serious: Yes (Hospitalization, Other)
  Sender: FDA-Public Use
  Company Number: US-009507513-1303USA010486

PATIENT
  Sex: Female
  Weight: 64.4 kg

DRUGS (3)
  1. FOSAMAX [Suspect]
     Active Substance: ALENDRONATE SODIUM
     Indication: OSTEOPOROSIS
     Dosage: 70 MG, UNK
     Route: 048
     Dates: start: 2000
  2. FOSAMAX PLUS D [Suspect]
     Active Substance: ALENDRONATE SODIUM\CHOLECALCIFEROL
     Dosage: 70 MG/2800 IU, QW
     Route: 048
     Dates: start: 20080604
  3. ALENDRONATE SODIUM. [Suspect]
     Active Substance: ALENDRONATE SODIUM
     Dosage: 70 MG, QW
     Route: 048
     Dates: start: 20090421

REACTIONS (29)
  - Femur fracture [Unknown]
  - Intramedullary rod insertion [Unknown]
  - Low turnover osteopathy [Unknown]
  - Left ventricular hypertrophy [Unknown]
  - Tricuspid valve incompetence [Unknown]
  - Cardiomegaly [Unknown]
  - Cough [Not Recovered/Not Resolved]
  - Musculoskeletal pain [Unknown]
  - Oedema peripheral [Unknown]
  - Femur fracture [Unknown]
  - Dyspnoea [Unknown]
  - Neck pain [Unknown]
  - Osteoarthritis [Unknown]
  - Mitral valve prolapse [Unknown]
  - Arthralgia [Unknown]
  - Fracture nonunion [Unknown]
  - Hypertension [Unknown]
  - Meniscus injury [Unknown]
  - QRS axis abnormal [Unknown]
  - Anaemia [Unknown]
  - Anxiety [Unknown]
  - Oedema [Unknown]
  - Fall [Unknown]
  - Hyperhidrosis [Unknown]
  - Palpitations [Unknown]
  - Chest pain [Recovered/Resolved]
  - Hypercholesterolaemia [Unknown]
  - Electrocardiogram T wave abnormal [Unknown]
  - Muscle spasms [Unknown]

NARRATIVE: CASE EVENT DATE: 2002
